FAERS Safety Report 6912111 (Version 3)
Quarter: 2013Q1

REPORT INFORMATION
  Report Type: Spontaneous
  Country: CA (occurrence: CA)
  Receive Date: 20090218
  Receipt Date: 20130311
  Transmission Date: 20140127
  Serious: Yes (Other)
  Sender: FDA-Public Use
  Company Number: CA-PFIZER INC-2009168756

PATIENT
  Age: 50 Year
  Sex: Male

DRUGS (3)
  1. CHAMPIX [Suspect]
     Indication: SMOKING CESSATION THERAPY
     Dosage: UNK
  2. MICARDIS [Concomitant]
     Dosage: UNK
  3. DRUG, UNSPECIFIED [Concomitant]
     Dosage: UNK

REACTIONS (5)
  - Homicidal ideation [Unknown]
  - Anger [Unknown]
  - Irritability [Unknown]
  - Feeling abnormal [Unknown]
  - Influenza like illness [Not Recovered/Not Resolved]
